FAERS Safety Report 11284848 (Version 4)
Quarter: 2016Q3

REPORT INFORMATION
  Report Type: Report from Study
  Country: US (occurrence: US)
  Receive Date: 20150720
  Receipt Date: 20160817
  Transmission Date: 20161109
  Serious: No
  Sender: FDA-Public Use
  Company Number: US-AEGERION PHARMACEUTICAL INC.-AEGR000768

PATIENT
  Age: 69 Year
  Sex: Male
  Weight: 107.3 kg

DRUGS (20)
  1. ASPIRIN. [Concomitant]
     Active Substance: ASPIRIN
     Indication: PROPHYLAXIS
     Dosage: 325 MG, QD
     Route: 048
     Dates: start: 20140220
  2. POTASSIUM [Concomitant]
     Active Substance: POTASSIUM
     Indication: CARDIAC FAILURE CONGESTIVE
     Dosage: 20 MEQ, QD
     Route: 048
     Dates: start: 20140220
  3. JUXTAPID [Suspect]
     Active Substance: LOMITAPIDE MESYLATE
     Dosage: 10 MG, QD
     Route: 048
     Dates: start: 20160208
  4. IMDUR [Concomitant]
     Active Substance: ISOSORBIDE MONONITRATE
     Indication: HYPERTENSION
     Dosage: 60 MG, QD
     Route: 048
     Dates: start: 20140220
  5. JUXTAPID [Suspect]
     Active Substance: LOMITAPIDE MESYLATE
     Dosage: 5 MG, QOD
     Route: 048
     Dates: start: 20140924, end: 20141013
  6. JUXTAPID [Suspect]
     Active Substance: LOMITAPIDE MESYLATE
     Dosage: 5 MG, QD
     Route: 048
     Dates: start: 20150529
  7. AMLODIPINE [Concomitant]
     Active Substance: AMLODIPINE BESYLATE
     Indication: ISCHAEMIA
     Dosage: 10 MG, QD
     Route: 048
     Dates: start: 20130314
  8. POTASSIUM [Concomitant]
     Active Substance: POTASSIUM
     Indication: SUPPLEMENTATION THERAPY
  9. JUXTAPID [Suspect]
     Active Substance: LOMITAPIDE MESYLATE
     Dosage: 5 MG, QOD
     Route: 048
     Dates: start: 20150414, end: 20150528
  10. INSULIN [Concomitant]
     Active Substance: INSULIN NOS
     Indication: TYPE 2 DIABETES MELLITUS
  11. OMEPRAZOLE. [Concomitant]
     Active Substance: OMEPRAZOLE
     Indication: GASTROOESOPHAGEAL REFLUX DISEASE
     Dosage: 20 MG, QD
     Route: 048
     Dates: start: 20150529
  12. RANEXA [Concomitant]
     Active Substance: RANOLAZINE
     Indication: DYSPNOEA
     Dosage: 500 MG, QD
     Route: 048
     Dates: start: 20140220, end: 20150210
  13. LASIX [Concomitant]
     Active Substance: FUROSEMIDE
     Indication: CARDIAC FAILURE CONGESTIVE
     Dosage: 40 MG, QD
     Route: 048
     Dates: start: 20140220
  14. NPH INSULIN [Concomitant]
     Active Substance: INSULIN BEEF
     Indication: DIABETES MELLITUS
     Dosage: 50 ^UI^, UNK
     Route: 058
     Dates: start: 19950811
  15. HCTZ [Concomitant]
     Active Substance: HYDROCHLOROTHIAZIDE
     Indication: CARDIAC FAILURE CONGESTIVE
     Dosage: 25 MG, QD
     Route: 048
     Dates: start: 20141121
  16. JUXTAPID [Suspect]
     Active Substance: LOMITAPIDE MESYLATE
     Indication: TYPE IIA HYPERLIPIDAEMIA
     Dosage: 5 MG, QD
     Route: 048
     Dates: start: 20140826, end: 20140923
  17. LOSARTAN. [Concomitant]
     Active Substance: LOSARTAN
     Indication: HYPERTENSION
     Dosage: 100 MG, QD
     Route: 048
     Dates: start: 20140220
  18. JUXTAPID [Suspect]
     Active Substance: LOMITAPIDE MESYLATE
     Dosage: 5 MG, QD
     Route: 048
     Dates: start: 20141014, end: 20150410
  19. FISH OIL [Concomitant]
     Active Substance: FISH OIL
     Indication: PRODUCT USED FOR UNKNOWN INDICATION
  20. ATENOLOL. [Concomitant]
     Active Substance: ATENOLOL
     Indication: HYPERTENSION
     Dosage: 50 MG QD AND 25 MG AT HS
     Route: 048
     Dates: start: 20140220

REACTIONS (14)
  - Fatigue [Recovered/Resolved]
  - Blood glucose fluctuation [Not Recovered/Not Resolved]
  - Dyschezia [Not Recovered/Not Resolved]
  - Abdominal discomfort [Recovered/Resolved]
  - Therapy cessation [Recovered/Resolved]
  - Weight decreased [Not Recovered/Not Resolved]
  - Myalgia [Not Recovered/Not Resolved]
  - Dizziness [Recovered/Resolved]
  - Asthenia [Recovering/Resolving]
  - Herpes zoster [Not Recovered/Not Resolved]
  - Pain in extremity [Recovered/Resolved]
  - Abdominal pain upper [Not Recovered/Not Resolved]
  - Pain [Recovering/Resolving]
  - Inappropriate schedule of drug administration [Recovered/Resolved]

NARRATIVE: CASE EVENT DATE: 20140920
